FAERS Safety Report 6532921-8 (Version None)
Quarter: 2009Q4

REPORT INFORMATION
  Report Type: 
  Country: None (occurrence: None)
  Receive Date: 20091231
  Receipt Date: 20091218
  Transmission Date: 20100525
  Serious: Yes (Death)
  Sender: FDA-Public Use
  Company Number: 2009AL007958

PATIENT
  Age: 40 Year
  Sex: Male

DRUGS (8)
  1. DIAZEPAM [Suspect]
     Indication: DRUG USE FOR UNKNOWN INDICATION
  2. HYDROMORPHONE HYDROCHLORIDE [Suspect]
     Indication: DRUG USE FOR UNKNOWN INDICATION
  3. KADIAN (MORPHINE SULFATE SUSTAINED RELEASE) (ALPHARMA) [Suspect]
     Indication: DRUG USE FOR UNKNOWN INDICATION
  4. SERTRALINE HYDROCHLORIDE              (BASE) (AELLC) [Suspect]
     Indication: DRUG USE FOR UNKNOWN INDICATION
  5. TEMAZEPAM [Suspect]
     Indication: DRUG USE FOR UNKNOWN INDICATION
  6. HYDROCODONE [Concomitant]
  7. CODEINE [Concomitant]
  8. CANNABIS [Concomitant]

REACTIONS (6)
  - ACCIDENTAL DEATH [None]
  - ACCIDENTAL OVERDOSE [None]
  - CARDIOMYOPATHY [None]
  - DRUG TOXICITY [None]
  - HEPATIC STEATOSIS [None]
  - HEPATOSPLENOMEGALY [None]
